FAERS Safety Report 18240317 (Version 1)
Quarter: 2020Q3

REPORT INFORMATION
  Report Type: Spontaneous
  Country: US (occurrence: US)
  Receive Date: 20200908
  Receipt Date: 20200908
  Transmission Date: 20201103
  Serious: No
  Sender: FDA-Public Use
  Company Number: US-GW PHARMA-202008USGW02988

PATIENT

DRUGS (1)
  1. EPIDIOLEX [Suspect]
     Active Substance: CANNABIDIOL
     Indication: EPILEPSY
     Dosage: 340 MILLIGRAM, BID
     Route: 048
     Dates: start: 20190228

REACTIONS (1)
  - Accident [Unknown]

NARRATIVE: CASE EVENT DATE: 20200828
